FAERS Safety Report 23430930 (Version 1)
Quarter: 2024Q1

REPORT INFORMATION
  Report Type: Spontaneous
  Country: RO (occurrence: RO)
  Receive Date: 20240123
  Receipt Date: 20240123
  Transmission Date: 20240410
  Serious: Yes (Other)
  Sender: FDA-Public Use
  Company Number: None

PATIENT
  Age: 88 Year
  Sex: Male

DRUGS (1)
  1. ENOXAPARIN SODIUM [Suspect]
     Active Substance: ENOXAPARIN SODIUM
     Dosage: 4000 IU, QOD
     Route: 058
     Dates: start: 20231109

REACTIONS (17)
  - Muscular weakness [Unknown]
  - Bladder sphincter atony [Unknown]
  - Delirium [Unknown]
  - Ocular icterus [Unknown]
  - Swelling [Unknown]
  - Anal sphincter atony [Unknown]
  - Dysphagia [Unknown]
  - Fatigue [Unknown]
  - Paraesthesia [Unknown]
  - Confusional state [Unknown]
  - Hypoaesthesia [Unknown]
  - Renal failure [Unknown]
  - Back pain [Unknown]
  - Anaemia [Unknown]
  - Nausea [Unknown]
  - Diarrhoea [Unknown]
  - Abdominal pain upper [Unknown]

NARRATIVE: CASE EVENT DATE: 20231101
